FAERS Safety Report 24783522 (Version 1)
Quarter: 2024Q4

REPORT INFORMATION
  Report Type: Spontaneous
  Country: US (occurrence: US)
  Receive Date: 20241227
  Receipt Date: 20241227
  Transmission Date: 20250115
  Serious: No
  Sender: SANOFI AVENTIS
  Company Number: US-SANOFI-02349082

PATIENT
  Age: 62 Year
  Sex: Male

DRUGS (2)
  1. PLAVIX [Suspect]
     Active Substance: CLOPIDOGREL BISULFATE
     Indication: Myocardial infarction
     Dosage: 75 MG, QD
  2. LIPITOR [Concomitant]
     Active Substance: ATORVASTATIN CALCIUM
     Dosage: UNK

REACTIONS (8)
  - Skin exfoliation [Unknown]
  - Neuralgia [Unknown]
  - Dyspnoea [Unknown]
  - Chest discomfort [Unknown]
  - Skin burning sensation [Unknown]
  - Pain [Unknown]
  - Swelling [Unknown]
  - Rash [Unknown]
